FAERS Safety Report 16274263 (Version 1)
Quarter: 2019Q2

REPORT INFORMATION
  Report Type: Spontaneous
  Country: IT (occurrence: IT)
  Receive Date: 20190506
  Receipt Date: 20190506
  Transmission Date: 20190711
  Serious: Yes (Other)
  Sender: FDA-Public Use
  Company Number: PHHY2019IT099039

PATIENT
  Age: 84 Year
  Sex: Male

DRUGS (1)
  1. METHOTREXATE. [Suspect]
     Active Substance: METHOTREXATE
     Indication: RHEUMATOID ARTHRITIS
     Dosage: 15 MG, QW
     Route: 065

REACTIONS (10)
  - Groin infection [Recovering/Resolving]
  - Blood creatinine increased [Recovering/Resolving]
  - Stomatitis [Recovering/Resolving]
  - Palatal ulcer [Recovering/Resolving]
  - Transaminases increased [Recovering/Resolving]
  - Toxicity to various agents [Recovering/Resolving]
  - Leukocytosis [Recovering/Resolving]
  - Lymphopenia [Recovering/Resolving]
  - Mouth ulceration [Recovering/Resolving]
  - Odynophagia [Recovering/Resolving]
